FAERS Safety Report 25813127 (Version 2)
Quarter: 2025Q3

REPORT INFORMATION
  Report Type: Spontaneous
  Country: US (occurrence: US)
  Receive Date: 20250917
  Receipt Date: 20250918
  Transmission Date: 20251021
  Serious: No
  Sender: UROGEN PHARMA
  Company Number: US-UROGEN PHARMA LTD.-2025-UGN-000164

PATIENT

DRUGS (4)
  1. ZUSDURI [Suspect]
     Active Substance: MITOMYCIN
     Indication: Product used for unknown indication
     Route: 065
     Dates: start: 2025, end: 2025
  2. ZUSDURI [Suspect]
     Active Substance: MITOMYCIN
     Route: 065
     Dates: start: 2025, end: 2025
  3. ZUSDURI [Suspect]
     Active Substance: MITOMYCIN
     Route: 065
     Dates: start: 2025, end: 2025
  4. ZUSDURI [Suspect]
     Active Substance: MITOMYCIN
     Route: 065
     Dates: start: 2025, end: 2025

REACTIONS (1)
  - Neuropathy peripheral [Unknown]

NARRATIVE: CASE EVENT DATE: 20250101
